FAERS Safety Report 24022141 (Version 1)
Quarter: 2024Q2

REPORT INFORMATION
  Report Type: Report from Study
  Country: US (occurrence: US)
  Receive Date: 20240627
  Receipt Date: 20240627
  Transmission Date: 20240715
  Serious: No
  Sender: FDA-Public Use
  Company Number: US-ROCHE-3514571

PATIENT
  Age: 56 Year
  Sex: Female

DRUGS (5)
  1. VABYSMO [Suspect]
     Active Substance: FARICIMAB\FARICIMAB-SVOA
     Indication: Macular degeneration
     Dosage: ONCE EVERY 4 WEEKS
     Route: 065
  2. BRIMONIDINE TARTRATE [Concomitant]
     Active Substance: BRIMONIDINE TARTRATE
     Dosage: 0.1 % SOLUTION
  3. FLEBOGAMMA [Concomitant]
     Active Substance: HUMAN IMMUNOGLOBULIN G
  4. METHOTREXATE [Concomitant]
     Active Substance: METHOTREXATE
  5. HERBALS [Concomitant]
     Active Substance: HERBALS
     Dosage: 4 MG TABLET 2.5 MG TABLET

REACTIONS (2)
  - Off label use [Unknown]
  - No adverse event [Unknown]
